FAERS Safety Report 6912814-4 (Version None)
Quarter: 2010Q3

REPORT INFORMATION
  Report Type: 
  Country: None (occurrence: None)
  Receive Date: 20100806
  Receipt Date: 20081231
  Transmission Date: 20110219
  Serious: Yes (Other)
  Sender: FDA-Public Use
  Company Number: US-PFIZER INC-2008152615

PATIENT
  Sex: Male
  Weight: 107.48 kg

DRUGS (1)
  1. DILANTIN [Suspect]
     Indication: GRAND MAL CONVULSION
     Dosage: 100 MG, 4X/DAY
     Dates: start: 19970101

REACTIONS (1)
  - GRAND MAL CONVULSION [None]
